FAERS Safety Report 14560877 (Version 2)
Quarter: 2018Q1

REPORT INFORMATION
  Report Type: Spontaneous
  Country: US (occurrence: US)
  Receive Date: 20180222
  Receipt Date: 20180319
  Transmission Date: 20180509
  Serious: Yes (Other)
  Sender: FDA-Public Use
  Company Number: US-SUN PHARMACEUTICAL INDUSTRIES LTD-2018US-163796

PATIENT
  Age: 59 Year
  Sex: Female

DRUGS (1)
  1. DOXYCYCLINE. [Suspect]
     Active Substance: DOXYCYCLINE
     Indication: PRODUCT USED FOR UNKNOWN INDICATION
     Route: 065

REACTIONS (8)
  - Abdominal discomfort [Unknown]
  - Malaise [Unknown]
  - Pruritus [Unknown]
  - Ascites [Unknown]
  - Hyperbilirubinaemia [Unknown]
  - Cholestasis [Unknown]
  - Immune thrombocytopenic purpura [Unknown]
  - Peritonitis bacterial [Unknown]
